FAERS Safety Report 16144126 (Version 7)
Quarter: 2020Q1

REPORT INFORMATION
  Report Type: Report from Study
  Country: JP (occurrence: JP)
  Receive Date: 20190401
  Receipt Date: 20200121
  Transmission Date: 20200409
  Serious: Yes (Hospitalization)
  Sender: FDA-Public Use
  Company Number: JP-ALLERGAN-1914355US

PATIENT
  Sex: Male

DRUGS (3)
  1. BOTULINUM TOXIN TYPE A - GENERAL (9060X) [Suspect]
     Active Substance: BOTULINUM TOXIN TYPE A
     Dosage: UNK, SINGLE
     Route: 030
     Dates: start: 201812, end: 201812
  2. BOTULINUM TOXIN TYPE A - GENERAL (9060X) [Suspect]
     Active Substance: BOTULINUM TOXIN TYPE A
     Dosage: UNK, SINGLE
     Route: 030
  3. BOTULINUM TOXIN TYPE A - GENERAL (9060X) [Suspect]
     Active Substance: BOTULINUM TOXIN TYPE A
     Indication: MUSCLE SPASTICITY
     Dosage: UNK, SINGLE
     Route: 030
     Dates: start: 20190308, end: 20190308

REACTIONS (10)
  - Physical deconditioning [Unknown]
  - Muscle tightness [Unknown]
  - Gait disturbance [Unknown]
  - Therapeutic product effect incomplete [Unknown]
  - Heart rate decreased [Unknown]
  - Heart rate increased [Recovering/Resolving]
  - Rib fracture [Unknown]
  - Pain [Unknown]
  - Fracture pain [Unknown]
  - Fall [Unknown]

NARRATIVE: CASE EVENT DATE: 20190317
